FAERS Safety Report 10684437 (Version 2)
Quarter: 2015Q1

REPORT INFORMATION
  Report Type: Spontaneous
  Country: IT (occurrence: None)
  Receive Date: 20141229
  Receipt Date: 20150107
  Transmission Date: 20150720
  Serious: Yes (Death)
  Sender: FDA-Public Use
  Company Number: 2679525

PATIENT
  Age: 53 Year
  Sex: Female

DRUGS (3)
  1. (CALCIUM LEVOFOLINATE) [Concomitant]
  2. FLUOROURACIL TEVA [Suspect]
     Active Substance: FLUOROURACIL
     Indication: ADENOCARCINOMA OF COLON
     Dosage: 4077 MG  MILLIGRAM(S)  UNKNOWN, INTRAVENOUS
     Route: 040
     Dates: start: 20141020, end: 20141110
  3. IRINOTECAN HYDROCHLORIDE. [Suspect]
     Active Substance: IRINOTECAN HYDROCHLORIDE
     Indication: ADENOCARCINOMA OF COLON
     Dosage: 186.3 MG MILLIGRAM (S) (TOTAL) ?INTRAVENOUS (NOT OTHERWISE SPECIFIED)
     Route: 042
     Dates: start: 20141110, end: 20141110

REACTIONS (6)
  - Septic shock [None]
  - Staphylococcus test positive [None]
  - Gene mutation [None]
  - Mucosal inflammation [None]
  - Pancytopenia [None]
  - Diarrhoea [None]

NARRATIVE: CASE EVENT DATE: 20141112
